FAERS Safety Report 7470322-9 (Version None)
Quarter: 2011Q2

REPORT INFORMATION
  Report Type: 
  Country: None (occurrence: None)
  Receive Date: 20110510
  Receipt Date: 20090828
  Transmission Date: 20111010
  Serious: Yes (Other)
  Sender: FDA-Public Use
  Company Number: US-BAYER-200931611NA

PATIENT
  Age: 59 Year
  Sex: Female
  Weight: 54.422 kg

DRUGS (12)
  1. IMDUR [Concomitant]
     Dosage: 30 MG, QD
     Route: 048
  2. TOPROL-XL [Concomitant]
     Dosage: 100 MG, UNK
     Route: 048
  3. LIPITOR [Concomitant]
     Dosage: 10 MG, UNK
     Route: 048
  4. TRIAMTERENE [Concomitant]
     Dosage: 70/50
     Route: 048
  5. NORVASC [Concomitant]
     Dosage: 10 MG, UNK
     Route: 048
  6. PROTONIX [Concomitant]
     Dosage: 40 MG, UNK
     Route: 048
  7. ACCUPRIL [Concomitant]
     Dosage: 10 MG, QD
     Route: 048
  8. NITROGLYCERIN [Concomitant]
  9. TRASYLOL [Suspect]
     Indication: CORONARY ARTERY BYPASS
     Dosage: 10MU/ML 100 ML VIAL
     Route: 042
     Dates: start: 20010712, end: 20010712
  10. ACETYLSALICYLIC ACID SRT [Concomitant]
     Dosage: 325 MG, UNK
     Route: 048
  11. VYTORIN [Concomitant]
     Dosage: 20/40
     Route: 048
  12. ISORBIDE [Concomitant]
     Dosage: 60 MG, UNK
     Route: 048

REACTIONS (10)
  - EMOTIONAL DISTRESS [None]
  - MULTI-ORGAN FAILURE [None]
  - PAIN [None]
  - STRESS [None]
  - RENAL FAILURE [None]
  - INJURY [None]
  - ANXIETY [None]
  - ANHEDONIA [None]
  - UNEVALUABLE EVENT [None]
  - FEAR [None]
